FAERS Safety Report 6077065-7 (Version None)
Quarter: 2009Q1

REPORT INFORMATION
  Report Type: 
  Country: None (occurrence: None)
  Receive Date: 20090212
  Receipt Date: 20090212
  Transmission Date: 20090719
  Serious: No
  Sender: FDA-Public Use
  Company Number: None

PATIENT
  Age: 63 Year
  Sex: Male
  Weight: 93.44 kg

DRUGS (1)
  1. NORTRIPTYLINE HCL [Suspect]
     Indication: PAIN
     Dosage: 25 MG AT BEDTIME PO
     Route: 048
     Dates: start: 20081201, end: 20081215

REACTIONS (2)
  - DIZZINESS [None]
  - SEDATION [None]
